FAERS Safety Report 16298440 (Version 2)
Quarter: 2019Q2

REPORT INFORMATION
  Report Type: Spontaneous
  Country: GB (occurrence: GB)
  Receive Date: 20190510
  Receipt Date: 20190514
  Transmission Date: 20190711
  Serious: Yes (Other)
  Sender: FDA-Public Use
  Company Number: GB-TEVA-2019-GB-1047779

PATIENT
  Age: 74 Year
  Sex: Female
  Weight: 82 kg

DRUGS (8)
  1. ATORVASTATIN [Suspect]
     Active Substance: ATORVASTATIN
     Indication: HYPERCHOLESTEROLAEMIA
     Dosage: 40 MILLIGRAM
     Dates: start: 20130702
  2. BENDROFLUMETHIAZIDE [Concomitant]
     Active Substance: BENDROFLUMETHIAZIDE
     Dosage: EACH MORNING 1 DF PER DAY
     Dates: start: 20181023
  3. VENTOLIN [Concomitant]
     Active Substance: ALBUTEROL SULFATE
     Dosage: 2 DF
     Route: 055
     Dates: start: 20180104
  4. CINNARIZINE [Concomitant]
     Active Substance: CINNARIZINE
     Dosage: 3 DF PER DAY
     Dates: start: 20190124, end: 20190131
  5. CYANOCOBALAMIN. [Concomitant]
     Active Substance: CYANOCOBALAMIN
     Dosage: 1 DF PER DAY
     Dates: start: 20181023
  6. FOSTAIR [Concomitant]
     Active Substance: BECLOMETHASONE\FORMOTEROL
     Dosage: 4 DF PER DAY
     Dates: start: 20190103
  7. STEXEROL-D3 [Concomitant]
     Dosage: 1 DF PER DAY
     Dates: start: 20181023
  8. AMLODIPINE [Concomitant]
     Active Substance: AMLODIPINE BESYLATE
     Dosage: 1 DF PER DAY
     Dates: start: 20181023

REACTIONS (2)
  - Inclusion body myositis [Unknown]
  - Myopathy [Recovered/Resolved]

NARRATIVE: CASE EVENT DATE: 20180702
